FAERS Safety Report 6662603-3 (Version None)
Quarter: 2010Q1

REPORT INFORMATION
  Report Type: 
  Country: None (occurrence: None)
  Receive Date: 20100331
  Receipt Date: 20100323
  Transmission Date: 20100710
  Serious: Yes (Hospitalization)
  Sender: FDA-Public Use
  Company Number: US-AMGEN-QUU380671

PATIENT
  Sex: Female

DRUGS (6)
  1. ENBREL [Suspect]
     Indication: RHEUMATOID ARTHRITIS
     Route: 058
  2. FOSAMAX [Concomitant]
     Route: 048
     Dates: start: 20091016
  3. SYNTHROID [Concomitant]
     Route: 048
     Dates: start: 20091016
  4. FOLIC ACID [Concomitant]
  5. METHOTREXATE [Concomitant]
  6. PLENDIL [Concomitant]
     Route: 048
     Dates: start: 20100108

REACTIONS (4)
  - FATIGUE [None]
  - INJECTION SITE HAEMATOMA [None]
  - INJECTION SITE PAIN [None]
  - OSTEOARTHRITIS [None]
